FAERS Safety Report 12183195 (Version 1)
Quarter: 2016Q1

REPORT INFORMATION
  Report Type: Spontaneous
  Country: JP (occurrence: JP)
  Receive Date: 20160316
  Receipt Date: 20160316
  Transmission Date: 20160526
  Serious: Yes (Other)
  Sender: FDA-Public Use
  Company Number: JP-009507513-1603JPN006267

PATIENT
  Sex: Male

DRUGS (2)
  1. ROZEREM [Concomitant]
     Active Substance: RAMELTEON
     Dosage: DAILY DOSAGE UNKNOWN
     Route: 065
     Dates: start: 20160228, end: 20160229
  2. BELSOMRA [Suspect]
     Active Substance: SUVOREXANT
     Indication: INSOMNIA
     Dosage: DAILY DOSAGE UNKNOWN
     Route: 048
     Dates: start: 20160228, end: 20160229

REACTIONS (1)
  - Altered state of consciousness [Recovered/Resolved]

NARRATIVE: CASE EVENT DATE: 20160229
